FAERS Safety Report 19433257 (Version 1)
Quarter: 2021Q2

REPORT INFORMATION
  Report Type: Spontaneous
  Country: US (occurrence: US)
  Receive Date: 20210617
  Receipt Date: 20210617
  Transmission Date: 20210717
  Serious: Yes (Other)
  Sender: FDA-Public Use
  Company Number: US-BIOMARINAP-US-2021-137045

PATIENT
  Age: 23 Year
  Sex: Male

DRUGS (1)
  1. NAGLAZYME [Suspect]
     Active Substance: GALSULFASE
     Indication: MUCOPOLYSACCHARIDOSIS VI
     Dosage: UNK, QW
     Route: 042

REACTIONS (6)
  - Left ventricular dysfunction [Unknown]
  - Mitral valve thickening [Unknown]
  - Cardiac disorder [Unknown]
  - Device related infection [Unknown]
  - Aortic valve incompetence [Unknown]
  - Orthopnoea [Unknown]
